FAERS Safety Report 18127090 (Version 1)
Quarter: 2020Q3

REPORT INFORMATION
  Report Type: Spontaneous
  Country: GR (occurrence: GR)
  Receive Date: 20200810
  Receipt Date: 20200810
  Transmission Date: 20201103
  Serious: Yes (Other)
  Sender: FDA-Public Use
  Company Number: GR-UNICHEM PHARMACEUTICALS (USA) INC-UCM202007-000856

PATIENT
  Age: 33 Year
  Sex: Male

DRUGS (6)
  1. VALSARTAN. [Suspect]
     Active Substance: VALSARTAN
  2. SACUBITRIL [Suspect]
     Active Substance: SACUBITRIL
  3. VALSARTAN. [Suspect]
     Active Substance: VALSARTAN
     Indication: CARDIOMYOPATHY
  4. SACUBITRIL [Suspect]
     Active Substance: SACUBITRIL
     Indication: CARDIOMYOPATHY
  5. VALSARTAN. [Suspect]
     Active Substance: VALSARTAN
  6. SACUBITRIL [Suspect]
     Active Substance: SACUBITRIL

REACTIONS (2)
  - Substance-induced psychotic disorder [Recovered/Resolved]
  - Hypotension [Unknown]
